FAERS Safety Report 4869726-X (Version None)
Quarter: 2005Q4

REPORT INFORMATION
  Report Type: 
  Country: None (occurrence: None)
  Receive Date: 20051223
  Receipt Date: 20051214
  Transmission Date: 20060501
  Serious: Yes (Death)
  Sender: FDA-Public Use
  Company Number: US016519

PATIENT
  Age: 45 Year
  Sex: Male

DRUGS (2)
  1. ACTIQ [Suspect]
  2. HYDROCODONE BITARTRATE [Suspect]

REACTIONS (2)
  - DRUG TOXICITY [None]
  - MULTIPLE DRUG OVERDOSE ACCIDENTAL [None]
